FAERS Safety Report 6216976-6 (Version None)
Quarter: 2009Q2

REPORT INFORMATION
  Report Type: 
  Country: None (occurrence: None)
  Receive Date: 20090604
  Receipt Date: 20090520
  Transmission Date: 20091009
  Serious: Yes (Disabling)
  Sender: FDA-Public Use
  Company Number: APP200800477

PATIENT
  Age: 41 Year
  Sex: Female

DRUGS (9)
  1. MARCAINE [Suspect]
     Indication: LOCAL ANAESTHESIA
     Dosage: 270 ML, 0.25% CONTINOUS VIA PUMP, INTRA-ARTICULAR
     Route: 014
     Dates: start: 20070529, end: 20070529
  2. MARCAINE [Suspect]
     Indication: MUSCULOSKELETAL PAIN
     Dosage: 270 ML, 0.25% CONTINOUS VIA PUMP, INTRA-ARTICULAR
     Route: 014
     Dates: start: 20070529, end: 20070529
  3. MARCAINE [Suspect]
     Indication: LOCAL ANAESTHESIA
     Dosage: 270 ML, 0.25% CONTINOUS VIA PUMP, INTRA-ARTICULAR
     Route: 014
     Dates: start: 20070824
  4. MARCAINE [Suspect]
     Indication: MUSCULOSKELETAL PAIN
     Dosage: 270 ML, 0.25% CONTINOUS VIA PUMP, INTRA-ARTICULAR
     Route: 014
     Dates: start: 20070824
  5. MARCAINE HYDROCHLORIDE W/ EPINEPHRINE [Suspect]
     Indication: LOCAL ANAESTHESIA
     Dosage: 20 ML, 0.25% RIGHT SHOULDER INTRA-ARTICULAR
     Route: 014
     Dates: start: 20070529, end: 20070529
  6. MARCAINE HYDROCHLORIDE W/ EPINEPHRINE [Suspect]
     Indication: LOCAL ANAESTHESIA
     Dosage: 20 ML, 0.25% RIGHT SHOULDER INTRA-ARTICULAR
     Route: 014
     Dates: start: 20070824, end: 20070824
  7. PAIN PUMP [Suspect]
     Indication: MUSCULOSKELETAL PAIN
     Dates: start: 20070824
  8. ANCEF [Concomitant]
  9. LACTATED RINGERS (FLEBOBAG RING LACT) [Concomitant]

REACTIONS (16)
  - ARTHRALGIA [None]
  - ARTHRITIS [None]
  - BURSA REMOVAL [None]
  - CHONDROLYSIS [None]
  - CHONDROMALACIA [None]
  - JOINT RANGE OF MOTION DECREASED [None]
  - MUSCULOSKELETAL PAIN [None]
  - PERIARTHRITIS [None]
  - RADICULOPATHY [None]
  - ROTATOR CUFF SYNDROME [None]
  - SLEEP DISORDER [None]
  - SYNOVITIS [None]
  - TENDON RUPTURE [None]
  - TENDONITIS [None]
  - TENODESIS [None]
  - TREATMENT NONCOMPLIANCE [None]
